FAERS Safety Report 13860052 (Version 4)
Quarter: 2018Q3

REPORT INFORMATION
  Report Type: Spontaneous
  Country: US (occurrence: US)
  Receive Date: 20170811
  Receipt Date: 20180703
  Transmission Date: 20181010
  Serious: Yes (Other)
  Sender: FDA-Public Use
  Company Number: US-BIOGEN-2017BI00443102

PATIENT
  Age: 58 Year
  Sex: Female

DRUGS (2)
  1. TECFIDERA [Suspect]
     Active Substance: DIMETHYL FUMARATE
     Route: 065
     Dates: start: 20160504
  2. TECFIDERA [Suspect]
     Active Substance: DIMETHYL FUMARATE
     Indication: MULTIPLE SCLEROSIS
     Dosage: MAINTAINANCE DOSE
     Route: 048
     Dates: start: 20160502

REACTIONS (7)
  - Mobility decreased [Not Recovered/Not Resolved]
  - Muscle spasms [Recovered/Resolved]
  - Drug effect decreased [Unknown]
  - Hemiplegia [Recovered/Resolved]
  - Musculoskeletal stiffness [Recovered/Resolved]
  - Dysstasia [Not Recovered/Not Resolved]
  - Gait inability [Not Recovered/Not Resolved]

NARRATIVE: CASE EVENT DATE: 2016
